FAERS Safety Report 18821712 (Version 1)
Quarter: 2021Q1

REPORT INFORMATION
  Report Type: Report from Study
  Country: US (occurrence: US)
  Receive Date: 20210202
  Receipt Date: 20210202
  Transmission Date: 20210419
  Serious: Yes (Hospitalization, Other)
  Sender: FDA-Public Use
  Company Number: US-TAKEDA-2019TUS049776

PATIENT
  Age: 62 Year
  Sex: Male
  Weight: 86 kg

DRUGS (2)
  1. VEDOLIZUMAB [Suspect]
     Active Substance: VEDOLIZUMAB
     Indication: CROHN^S DISEASE
     Dosage: 300 MILLIGRAM
     Route: 042
     Dates: start: 20190812
  2. VEDOLIZUMAB [Suspect]
     Active Substance: VEDOLIZUMAB
     Dosage: 300 MILLIGRAM, Q4WEEKS
     Route: 042

REACTIONS (9)
  - Off label use [Unknown]
  - Dizziness postural [Unknown]
  - Headache [Unknown]
  - Asthma [Not Recovered/Not Resolved]
  - Fatigue [Recovering/Resolving]
  - Intestinal obstruction [Unknown]
  - Dysgeusia [Unknown]
  - Drug effect less than expected [Unknown]
  - Drug level decreased [Unknown]

NARRATIVE: CASE EVENT DATE: 201908
